FAERS Safety Report 21968905 (Version 1)
Quarter: 2023Q1

REPORT INFORMATION
  Report Type: Spontaneous
  Country: US (occurrence: None)
  Receive Date: 20230207
  Receipt Date: 20230207
  Transmission Date: 20230417
  Serious: Yes (Other)
  Sender: FDA-Public Use
  Company Number: None

PATIENT
  Age: 58 Year
  Sex: Male
  Weight: 123.75 kg

DRUGS (5)
  1. GLUTATHIONE [Suspect]
     Active Substance: GLUTATHIONE
     Indication: Product used for unknown indication
     Route: 042
     Dates: start: 20230206, end: 20230206
  2. LOPAREX [Concomitant]
  3. HIGH BLOOD PRESSURE MEDS [Concomitant]
  4. VITAMINS [Concomitant]
  5. UNSPECIFIED INGREDIENT [Concomitant]
     Active Substance: UNSPECIFIED INGREDIENT

REACTIONS (6)
  - Injection related reaction [None]
  - Dizziness [None]
  - Syncope [None]
  - Hyperhidrosis [None]
  - Retching [None]
  - Vomiting [None]

NARRATIVE: CASE EVENT DATE: 20230206
